FAERS Safety Report 4466720-8 (Version None)
Quarter: 2004Q4

REPORT INFORMATION
  Report Type: 
  Country: None (occurrence: None)
  Receive Date: 20041001
  Receipt Date: 20041001
  Transmission Date: 20050328
  Serious: Yes (Disabling, Other)
  Sender: FDA-Public Use
  Company Number: None

PATIENT
  Sex: Male
  Weight: 88.4514 kg

DRUGS (2)
  1. VIOXX [Suspect]
     Indication: ARTHRALGIA
     Dosage: ONE FOR PAIN ORAL
     Route: 048
     Dates: start: 19990207, end: 19990219
  2. CELEBREX [Suspect]
     Indication: ARTHRALGIA
     Dosage: ONE TO THREE PAIN/ DAILY/PAI ORAL
     Route: 048
     Dates: start: 19990221, end: 19990305

REACTIONS (14)
  - ABDOMINAL PAIN UPPER [None]
  - CARDIAC DISORDER [None]
  - CEREBROVASCULAR ACCIDENT [None]
  - EAR PAIN [None]
  - EYE PAIN [None]
  - FEELING HOT [None]
  - GASTRIC DISORDER [None]
  - HEADACHE [None]
  - INTRAOCULAR PRESSURE TEST ABNORMAL [None]
  - MYOCARDIAL INFARCTION [None]
  - NECK PAIN [None]
  - PAIN [None]
  - TINNITUS [None]
  - VISION BLURRED [None]
